FAERS Safety Report 19901341 (Version 1)
Quarter: 2021Q3

REPORT INFORMATION
  Report Type: Spontaneous
  Country: US (occurrence: US)
  Receive Date: 20210930
  Receipt Date: 20210930
  Transmission Date: 20211014
  Serious: No
  Sender: FDA-Public Use
  Company Number: US-RECORDATI-2021003442

PATIENT

DRUGS (7)
  1. ISTURISA [Suspect]
     Active Substance: OSILODROSTAT PHOSPHATE
     Dosage: 2 MILLIGRAM TWICE DAILY
     Route: 048
     Dates: start: 20210623
  2. VIVISCAL [SILICON DIOXIDE] [Concomitant]
     Active Substance: SILICON DIOXIDE
     Indication: ALOPECIA
     Dosage: 1 TABLET TWICE DAILY,
     Dates: start: 20210714
  3. MULTIVITAMINS [VITAMINS NOS] [Concomitant]
     Active Substance: VITAMINS
     Indication: PRODUCT USED FOR UNKNOWN INDICATION
  4. ISTURISA [Suspect]
     Active Substance: OSILODROSTAT PHOSPHATE
     Indication: PITUITARY-DEPENDENT CUSHING^S SYNDROME
     Dosage: 2 MILLIGRAM, BID
     Route: 048
     Dates: start: 20210618, end: 202108
  5. ISTURISA [Suspect]
     Active Substance: OSILODROSTAT PHOSPHATE
     Dosage: 3 MILLIGRAM, BID
     Route: 048
     Dates: start: 20210818
  6. ALLEGRA [Concomitant]
     Active Substance: FEXOFENADINE HYDROCHLORIDE
     Indication: HYPERSENSITIVITY
     Dosage: UNK
     Dates: start: 20190617
  7. CENTRUM BALANCE [Concomitant]
     Indication: HYPOVITAMINOSIS
     Dosage: 1 TABLET IN MORNING
     Dates: start: 20210614

REACTIONS (2)
  - Diarrhoea [Not Recovered/Not Resolved]
  - Acne [Not Recovered/Not Resolved]

NARRATIVE: CASE EVENT DATE: 2021
